FAERS Safety Report 15783101 (Version 1)
Quarter: 2019Q1

REPORT INFORMATION
  Report Type: Spontaneous
  Country: RU (occurrence: RU)
  Receive Date: 20190102
  Receipt Date: 20190102
  Transmission Date: 20190417
  Serious: Yes (Other)
  Sender: FDA-Public Use
  Company Number: RU-BAYER-2018-243725

PATIENT
  Sex: Female

DRUGS (1)
  1. ANGELIQ [Suspect]
     Active Substance: DROSPIRENONE\ESTRADIOL
     Indication: HOT FLUSH
     Dosage: UNK
     Route: 048
     Dates: start: 2018, end: 201808

REACTIONS (2)
  - Ovarian cancer [None]
  - Intestinal polyp [None]

NARRATIVE: CASE EVENT DATE: 2018
